FAERS Safety Report 16893531 (Version 1)
Quarter: 2019Q4

REPORT INFORMATION
  Report Type: Spontaneous
  Country: US (occurrence: US)
  Receive Date: 20190813
  Receipt Date: 20190813
  Transmission Date: 20200122
  Serious: No
  Sender: FDA-Public Use
  Company Number: None

PATIENT
  Age: 56 Year
  Sex: Female

DRUGS (1)
  1. ENTECAVIR 1MG TAB( X30) [Suspect]
     Active Substance: ENTECAVIR
     Route: 048
     Dates: start: 20161114

REACTIONS (4)
  - Nasopharyngitis [None]
  - Pain [None]
  - Somnolence [None]
  - Chills [None]

NARRATIVE: CASE EVENT DATE: 20190501
